FAERS Safety Report 4336483-5 (Version None)
Quarter: 2004Q2

REPORT INFORMATION
  Report Type: 
  Country: None (occurrence: None)
  Receive Date: 20040409
  Receipt Date: 20040409
  Transmission Date: 20050107
  Serious: Yes (Disabling)
  Sender: FDA-Public Use
  Company Number: None

PATIENT
  Sex: Male
  Weight: 61.2356 kg

DRUGS (2)
  1. BACLOFEN [Suspect]
     Indication: TOURETTE'S DISORDER
     Dosage: ONE TABLET, DAILY, ORAL
     Route: 048
     Dates: start: 20040113, end: 20040119
  2. CLONAZEPAM [Suspect]
     Indication: TOURETTE'S DISORDER
     Dosage: 11/2 TABLET TWICE DAILY ORAL
     Route: 048
     Dates: start: 20040120, end: 20040405

REACTIONS (3)
  - HEADACHE [None]
  - SCREAMING [None]
  - TIC [None]
